FAERS Safety Report 4771561-8 (Version None)
Quarter: 2005Q3

REPORT INFORMATION
  Report Type: 
  Country: None (occurrence: None)
  Receive Date: 20050914
  Receipt Date: 20050914
  Transmission Date: 20060218
  Serious: Yes (Hospitalization)
  Sender: FDA-Public Use
  Company Number: None

PATIENT
  Age: 6 Year
  Sex: Female
  Weight: 21 kg

DRUGS (3)
  1. PROPOFOL [Suspect]
     Indication: HUMERUS FRACTURE
     Dosage: 80 MG ONCE IV
     Route: 042
     Dates: start: 20050604, end: 20050604
  2. FENTANYL [Concomitant]
  3. ANCEF [Concomitant]

REACTIONS (2)
  - DELAYED RECOVERY FROM ANAESTHESIA [None]
  - TREMOR [None]
